FAERS Safety Report 6396097-2 (Version None)
Quarter: 2009Q4

REPORT INFORMATION
  Report Type: 
  Country: None (occurrence: None)
  Receive Date: 20091009
  Receipt Date: 20091002
  Transmission Date: 20100525
  Serious: Yes (Other)
  Sender: FDA-Public Use
  Company Number: US-GENENTECH-291712

PATIENT

DRUGS (3)
  1. BEVACIZUMAB [Suspect]
     Indication: NEOPLASM
     Dosage: 7.5 MG/KG, UNK
     Route: 042
     Dates: start: 20090520
  2. BEVACIZUMAB [Suspect]
     Indication: LYMPHOMA
  3. VANDETANIB [Suspect]
     Indication: NEOPLASM
     Dosage: 200 MG, QD
     Route: 048
     Dates: start: 20090520

REACTIONS (1)
  - HYPOPHOSPHATAEMIA [None]
